FAERS Safety Report 19525194 (Version 1)
Quarter: 2021Q3

REPORT INFORMATION
  Report Type: Spontaneous
  Country: US (occurrence: US)
  Receive Date: 20210712
  Receipt Date: 20210712
  Transmission Date: 20211014
  Serious: Yes (Hospitalization)
  Sender: FDA-Public Use
  Company Number: None

PATIENT
  Age: 41 Year
  Sex: Male
  Weight: 77.11 kg

DRUGS (6)
  1. ATORVASTATIN [Concomitant]
     Active Substance: ATORVASTATIN
  2. ASPIRIN. [Concomitant]
     Active Substance: ASPIRIN
  3. AKYNZEO [Suspect]
     Active Substance: NETUPITANT\PALONOSETRON HYDROCHLORIDE
     Indication: TESTIS CANCER
     Dosage: ?          OTHER DOSE:300?0.5MG;OTHER ROUTE:ORAL 1HR BEFORE CHEMO?
     Dates: start: 20210619
  4. CARVEDILOL. [Concomitant]
     Active Substance: CARVEDILOL
  5. FERROUS SULFATE. [Concomitant]
     Active Substance: FERROUS SULFATE
  6. MESALAMINE. [Concomitant]
     Active Substance: MESALAMINE

REACTIONS (2)
  - Blood urine present [None]
  - Escherichia infection [None]
